FAERS Safety Report 7532284-5 (Version None)
Quarter: 2011Q2

REPORT INFORMATION
  Report Type: 
  Country: None (occurrence: None)
  Receive Date: 20110601
  Receipt Date: 20110517
  Transmission Date: 20111010
  Serious: No
  Sender: FDA-Public Use
  Company Number: 2011P1006529

PATIENT
  Age: 36 Year
  Sex: Male
  Weight: 158.759 kg

DRUGS (4)
  1. WARFARIN SODIUM [Suspect]
     Indication: PROTEIN C DEFICIENCY
     Dosage: 5 MG;SUNDAY;PO ; 5 MG;MONDAY, WEDNESDAY, FRIDAY;PO
     Route: 048
     Dates: start: 20110401, end: 20110511
  2. WARFARIN SODIUM [Suspect]
     Indication: PROTEIN C DEFICIENCY
     Dosage: 5 MG;SUNDAY;PO ; 5 MG;MONDAY, WEDNESDAY, FRIDAY;PO
     Route: 048
     Dates: start: 20110511
  3. WARFARIN SODIUM [Concomitant]
  4. TEGRETOL XR (CARBAMAZAPINE) [Concomitant]

REACTIONS (4)
  - PROTHROMBIN TIME PROLONGED [None]
  - NAUSEA [None]
  - VOMITING [None]
  - VIRAL INFECTION [None]
